FAERS Safety Report 18619879 (Version 3)
Quarter: 2021Q2

REPORT INFORMATION
  Report Type: Spontaneous
  Country: US (occurrence: US)
  Receive Date: 20201215
  Receipt Date: 20210615
  Transmission Date: 20210717
  Serious: No
  Sender: FDA-Public Use
  Company Number: US-PFIZER INC-2020494513

PATIENT
  Age: 71 Year
  Sex: Female
  Weight: 58.97 kg

DRUGS (3)
  1. IBRANCE [Suspect]
     Active Substance: PALBOCICLIB
     Dosage: 75 MG, CYCLIC (DAILY FOR 3 WEEKS BY MOUTH AND THEN OFF FOR ONE WEEK.)
     Route: 048
     Dates: end: 20210126
  2. IBRANCE [Suspect]
     Active Substance: PALBOCICLIB
     Indication: BREAST CANCER STAGE IV
     Dosage: 125 MG
     Dates: start: 202010
  3. IBRANCE [Suspect]
     Active Substance: PALBOCICLIB
     Dosage: 100 MG

REACTIONS (3)
  - White blood cell count decreased [Not Recovered/Not Resolved]
  - Weight increased [Unknown]
  - Bone pain [Unknown]

NARRATIVE: CASE EVENT DATE: 2020
